FAERS Safety Report 17166277 (Version 3)
Quarter: 2025Q1

REPORT INFORMATION
  Report Type: Spontaneous
  Country: IT (occurrence: IT)
  Receive Date: 20191217
  Receipt Date: 20250325
  Transmission Date: 20250409
  Serious: Yes (Death, Life-Threatening)
  Sender: MYLAN
  Company Number: IT-CHEPLA-C20191624

PATIENT
  Age: 35 Year
  Sex: Male

DRUGS (8)
  1. AMLODIPINE [Suspect]
     Active Substance: AMLODIPINE BESYLATE
     Indication: Product used for unknown indication
  2. FUROSEMIDE [Suspect]
     Active Substance: FUROSEMIDE
     Indication: Product used for unknown indication
  3. FUROSEMIDE [Suspect]
     Active Substance: FUROSEMIDE
  4. PREDNISONE [Suspect]
     Active Substance: PREDNISONE
     Indication: Acute promyelocytic leukaemia
  5. DEXAMETHASONE [Suspect]
     Active Substance: DEXAMETHASONE
     Indication: Differentiation syndrome
     Dosage: 10 MG INTRAVENOUSLY TWICE A DAY
  6. DEXAMETHASONE [Suspect]
     Active Substance: DEXAMETHASONE
     Dosage: 10 MG INTRAVENOUSLY TWICE A DAY
  7. HYDROXYUREA [Suspect]
     Active Substance: HYDROXYUREA
     Indication: Acute promyelocytic leukaemia
  8. TRETINOIN [Suspect]
     Active Substance: TRETINOIN
     Indication: Acute promyelocytic leukaemia

REACTIONS (7)
  - Cerebral haemorrhage [Fatal]
  - Cardiac arrest [Fatal]
  - Differentiation syndrome [Fatal]
  - Generalised tonic-clonic seizure [Not Recovered/Not Resolved]
  - Hypertension [Unknown]
  - Depressed level of consciousness [Unknown]
  - Therapy non-responder [Unknown]
